FAERS Safety Report 23311056 (Version 3)
Quarter: 2024Q1

REPORT INFORMATION
  Report Type: Spontaneous
  Country: US (occurrence: US)
  Receive Date: 20231218
  Receipt Date: 20240124
  Transmission Date: 20240409
  Serious: Yes (Other)
  Sender: FDA-Public Use
  Company Number: US-BEH-2023166499

PATIENT
  Sex: Female

DRUGS (1)
  1. HUMATE-P [Suspect]
     Active Substance: HUMAN COAGULATION FACTOR VIII/VON WILLEBRAND FACTOR COMPLEX
     Indication: Von Willebrand^s disease
     Dosage: 3900 (3150-4290) RCOF UNITS, TIW (MONDAYS, WEDNESDAYS AND FRIDAYS)
     Route: 042
     Dates: start: 202205

REACTIONS (7)
  - Haemarthrosis [Unknown]
  - Arthralgia [Unknown]
  - Gait disturbance [Unknown]
  - Pain [Unknown]
  - Insomnia [Unknown]
  - Traumatic haemorrhage [Unknown]
  - Limb injury [Unknown]
